FAERS Safety Report 8602111-3 (Version None)
Quarter: 2012Q3

REPORT INFORMATION
  Report Type: 
  Country: None (occurrence: None)
  Receive Date: 20120817
  Receipt Date: 20120813
  Transmission Date: 20120928
  Serious: Yes (Other)
  Sender: FDA-Public Use
  Company Number: US-PFIZER INC-2012198326

PATIENT
  Age: 51 Year
  Sex: Female
  Weight: 63.492 kg

DRUGS (1)
  1. DILANTIN [Suspect]
     Dosage: 100 MG, 3X/DAY

REACTIONS (2)
  - URTICARIA [None]
  - PRODUCT FORMULATION ISSUE [None]
